FAERS Safety Report 6451056-6 (Version None)
Quarter: 2009Q4

REPORT INFORMATION
  Report Type: 
  Country: None (occurrence: None)
  Receive Date: 20091123
  Receipt Date: 20091119
  Transmission Date: 20100525
  Serious: Yes (Life-Threatening, Hospitalization)
  Sender: FDA-Public Use
  Company Number: GXKR2009DE10877

PATIENT
  Age: 63 Year
  Sex: Female
  Weight: 81 kg

DRUGS (14)
  1. TORASEMID HEXAL (NGX) [Suspect]
     Indication: RENAL FAILURE CHRONIC
     Dosage: 100 MG, QD
     Route: 048
     Dates: start: 20060101, end: 20090712
  2. METOPROLOL SUCCINATE EXTENDED RELEASE [Suspect]
     Indication: HYPERTENSION
     Dosage: 47.5 MG, QD
     Route: 048
     Dates: end: 20090709
  3. AMLODIPIN RATIO [Suspect]
     Indication: HYPERTENSION
     Dosage: 5 MG, BID
     Route: 048
     Dates: end: 20090709
  4. BICANORM                           /01764101/ [Suspect]
     Indication: RENAL FAILURE CHRONIC
     Dosage: 1 G, TID
     Route: 048
     Dates: start: 20060101, end: 20090712
  5. OMEPRAZOLE [Suspect]
     Indication: GASTRIC ULCER
     Dosage: 10 MG, QD
     Route: 048
     Dates: end: 20090711
  6. XIPAMID AAA [Suspect]
     Indication: HYPERTENSION
     Dosage: 10 MG, QD
     Route: 048
     Dates: start: 20060101, end: 20090712
  7. ARANESP [Concomitant]
  8. ASPIRIN [Concomitant]
  9. DEKRISTOL [Concomitant]
  10. ERYFER                                  /GFR/ [Concomitant]
  11. MOXONIDINE [Concomitant]
  12. NOVONORM [Concomitant]
  13. RESTEX [Concomitant]
  14. SIMVASTATIN CT [Concomitant]

REACTIONS (4)
  - HYPOKALAEMIA [None]
  - HYPONATRAEMIA [None]
  - METABOLIC ALKALOSIS [None]
  - VENTRICULAR FIBRILLATION [None]
